FAERS Safety Report 6290923-3 (Version None)
Quarter: 2009Q3

REPORT INFORMATION
  Report Type: 
  Country: None (occurrence: None)
  Receive Date: 20090730
  Receipt Date: 20090724
  Transmission Date: 20100115
  Serious: Yes (Death)
  Sender: FDA-Public Use
  Company Number: PHHY2009BR30972

PATIENT
  Sex: Female

DRUGS (5)
  1. DIOVAN HCT [Suspect]
     Indication: HYPERTENSION
     Dosage: 320/12.5 MG
     Dates: start: 20081024
  2. RASILEZ [Suspect]
     Indication: HYPERTENSION
     Dosage: 150 MG, UNK
     Dates: start: 20081212
  3. RASILEZ [Suspect]
     Dosage: 300 MG, UNK
     Dates: start: 20090212
  4. DIOVAN [Suspect]
     Indication: HYPERTENSION
     Dosage: 320 MG, UNK
     Dates: start: 20090313
  5. CHEMOTHERAPEUTICS NOS [Concomitant]

REACTIONS (1)
  - PULMONARY EMBOLISM [None]
